FAERS Safety Report 19488210 (Version 10)
Quarter: 2025Q2

REPORT INFORMATION
  Report Type: Report from Study
  Country: US (occurrence: US)
  Receive Date: 20210702
  Receipt Date: 20250604
  Transmission Date: 20250716
  Serious: Yes (Hospitalization, Other)
  Sender: TAKEDA
  Company Number: US-TAKEDA-2019TUS066428

PATIENT
  Age: 48 Year
  Sex: Female

DRUGS (10)
  1. PONATINIB [Suspect]
     Active Substance: PONATINIB
     Indication: Acute lymphocytic leukaemia
     Dosage: 15 MILLIGRAM, QOD
  2. PONATINIB [Suspect]
     Active Substance: PONATINIB
     Dosage: 15 MILLIGRAM, QD
  3. PONATINIB [Suspect]
     Active Substance: PONATINIB
     Dosage: 15 MILLIGRAM, QD
  4. PONATINIB [Suspect]
     Active Substance: PONATINIB
     Dosage: 15 MILLIGRAM, QD
  5. PONATINIB [Suspect]
     Active Substance: PONATINIB
     Dosage: 15 MILLIGRAM, QD
  6. PONATINIB [Suspect]
     Active Substance: PONATINIB
     Dosage: 15 MILLIGRAM, QD
  7. PONATINIB [Suspect]
     Active Substance: PONATINIB
     Dosage: 15 MILLIGRAM, QD
  8. ACYCLOVIR [Concomitant]
     Active Substance: ACYCLOVIR
  9. POSACONAZOLE [Concomitant]
     Active Substance: POSACONAZOLE
  10. POTASSIUM [Concomitant]
     Active Substance: POTASSIUM

REACTIONS (17)
  - Escherichia infection [Unknown]
  - Sinusitis [Unknown]
  - Neuropathy peripheral [Unknown]
  - Ocular discomfort [Recovered/Resolved]
  - Photophobia [Unknown]
  - Eye irritation [Recovered/Resolved]
  - Lacrimation increased [Recovered/Resolved]
  - Muscle tightness [Unknown]
  - Off label use [Unknown]
  - Oesophagitis [Unknown]
  - Product dose omission issue [Unknown]
  - Vision blurred [Unknown]
  - Dry eye [Unknown]
  - Muscle spasms [Unknown]
  - Eye pain [Recovered/Resolved]
  - Neutrophil count decreased [Unknown]
  - Arthralgia [Unknown]

NARRATIVE: CASE EVENT DATE: 20210618
